FAERS Safety Report 7477563-5 (Version None)
Quarter: 2011Q2

REPORT INFORMATION
  Report Type: 
  Country: None (occurrence: None)
  Receive Date: 20110513
  Receipt Date: 20110428
  Transmission Date: 20111010
  Serious: Yes (Life-Threatening, Hospitalization, Other)
  Sender: FDA-Public Use
  Company Number: JP-JNJFOC-20110411573

PATIENT
  Sex: Male

DRUGS (17)
  1. NAUZELIN [Suspect]
     Indication: VOMITING
     Route: 065
  2. ALLEGRA [Concomitant]
     Indication: HYPERTENSION
     Route: 048
  3. DOXAZOSIN MESYLATE [Concomitant]
     Indication: HYPERTENSION
     Route: 048
  4. XYLOCAINE [Concomitant]
     Indication: SURGERY
     Route: 058
  5. OPALMON [Concomitant]
     Indication: VASCULAR INSUFFICIENCY
     Route: 048
  6. ACECOL [Concomitant]
     Indication: HYPERTENSION
     Route: 048
  7. ALOSITOL [Concomitant]
     Indication: HYPERURICAEMIA
     Route: 048
  8. ZOLPIDEM [Concomitant]
     Indication: INSOMNIA
     Route: 048
  9. NAUZELIN [Suspect]
     Indication: NAUSEA
     Route: 065
  10. DIOVAN [Concomitant]
     Indication: HYPERTENSION
     Route: 048
  11. ADALAT CC [Concomitant]
     Indication: HYPERTENSION
     Route: 048
  12. ADALAT CC [Concomitant]
     Route: 048
  13. ALDOMET [Concomitant]
     Indication: HYPERTENSION
     Route: 048
  14. LEVOFLOXACIN [Suspect]
     Indication: INTERVERTEBRAL DISCITIS
     Route: 048
  15. LEVOFLOXACIN [Suspect]
     Route: 048
  16. LASIX [Concomitant]
     Indication: CARDIAC FAILURE CONGESTIVE
     Route: 048
  17. ALDACTONE [Concomitant]
     Indication: CARDIAC FAILURE CONGESTIVE
     Route: 048

REACTIONS (9)
  - ALTERED STATE OF CONSCIOUSNESS [None]
  - DECREASED APPETITE [None]
  - PARALYSIS FLACCID [None]
  - RESTLESSNESS [None]
  - VOMITING [None]
  - LOGORRHOEA [None]
  - RESPIRATORY DISORDER [None]
  - NAUSEA [None]
  - ASTHENIA [None]
